FAERS Safety Report 22082389 (Version 1)
Quarter: 2023Q1

REPORT INFORMATION
  Report Type: Report from Study
  Country: US (occurrence: US)
  Receive Date: 20230310
  Receipt Date: 20230310
  Transmission Date: 20230418
  Serious: Yes (Hospitalization)
  Sender: FDA-Public Use
  Company Number: US-ABBVIE-4326583

PATIENT
  Sex: Female

DRUGS (1)
  1. SKYRIZI [Suspect]
     Active Substance: RISANKIZUMAB-RZAA
     Indication: Crohn^s disease
     Route: 042
     Dates: start: 20230130

REACTIONS (4)
  - Kidney infection [Recovering/Resolving]
  - Rectocele [Not Recovered/Not Resolved]
  - Fistula [Not Recovered/Not Resolved]
  - Hernia [Not Recovered/Not Resolved]
